FAERS Safety Report 24685950 (Version 1)
Quarter: 2024Q4

REPORT INFORMATION
  Report Type: Spontaneous
  Country: US (occurrence: None)
  Receive Date: 20241130
  Receipt Date: 20241130
  Transmission Date: 20250115
  Serious: Yes (Hospitalization)
  Sender: Public
  Company Number: None

PATIENT
  Age: 35 Year
  Sex: Male

DRUGS (4)
  1. BIKTARVY [Suspect]
     Active Substance: BICTEGRAVIR SODIUM\EMTRICITABINE\TENOFOVIR ALAFENAMIDE FUMARATE
     Indication: HIV infection
     Dosage: OTHER STRENGTH : 50/200/25M;?OTHER QUANTITY : 50/200/25M;?FREQUENCY : DAILY;?
     Route: 048
     Dates: start: 202411
  2. PROMETHAZINE HCL [Concomitant]
  3. FLUCONAZOLE [Concomitant]
  4. DOXYCYCLINE MONOHYDRATE [Concomitant]

REACTIONS (5)
  - Multiple sclerosis [None]
  - Nervous system disorder [None]
  - Headache [None]
  - Back pain [None]
  - Hypoaesthesia [None]

NARRATIVE: CASE EVENT DATE: 20241119
